FAERS Safety Report 14323549 (Version 3)
Quarter: 2018Q1

REPORT INFORMATION
  Report Type: Spontaneous
  Country: US (occurrence: US)
  Receive Date: 20171226
  Receipt Date: 20180205
  Transmission Date: 20180509
  Serious: No
  Sender: FDA-Public Use
  Company Number: PHEH2017US041493

PATIENT
  Age: 40 Year
  Sex: Female

DRUGS (1)
  1. PREDNISOLONE ACETATE. [Suspect]
     Active Substance: PREDNISOLONE ACETATE
     Indication: PREOPERATIVE CARE
     Dosage: 2 GTT, QD
     Route: 047
     Dates: start: 20171122

REACTIONS (2)
  - Wrong technique in product usage process [Unknown]
  - Product dropper issue [Unknown]

NARRATIVE: CASE EVENT DATE: 20171122
